FAERS Safety Report 6512849-X (Version None)
Quarter: 2009Q4

REPORT INFORMATION
  Report Type: 
  Country: None (occurrence: None)
  Receive Date: 20091222
  Receipt Date: 20091214
  Transmission Date: 20100525
  Serious: Yes (Other)
  Sender: FDA-Public Use
  Company Number: FR-GILEAD-2009-0026005

PATIENT
  Age: 65 Year
  Sex: Male

DRUGS (2)
  1. TRUVADA [Suspect]
     Indication: DRUG USE FOR UNKNOWN INDICATION
  2. COMBIVIR [Concomitant]

REACTIONS (4)
  - BONE PAIN [None]
  - HYPOPHOSPHATAEMIA [None]
  - OSTEONECROSIS [None]
  - RENAL FAILURE [None]
